FAERS Safety Report 25954800 (Version 1)
Quarter: 2025Q4

REPORT INFORMATION
  Report Type: Spontaneous
  Country: US (occurrence: US)
  Receive Date: 20251024
  Receipt Date: 20251024
  Transmission Date: 20260117
  Serious: No
  Sender: ROCHE
  Company Number: US-ROCHE-10000411911

PATIENT
  Age: 69 Year
  Sex: Male

DRUGS (2)
  1. XOLAIR PFS [Suspect]
     Active Substance: OMALIZUMAB
     Indication: Eosinophilic cellulitis
     Dosage: INJECT THE CONTENTS OF 2 DEVICES UNDER THE SKIN EVERY 3 WEEKS (TOTAL: 300MG EVERY 3 WEEKS)
     Route: 058
  2. XOLAIR PFS [Suspect]
     Active Substance: OMALIZUMAB

REACTIONS (4)
  - Needle issue [Unknown]
  - Off label use [Unknown]
  - Injection site pain [Unknown]
  - Pain [Unknown]
